FAERS Safety Report 5411458-3 (Version None)
Quarter: 2007Q3

REPORT INFORMATION
  Report Type: 
  Country: None (occurrence: None)
  Receive Date: 20070810
  Receipt Date: 20070731
  Transmission Date: 20080115
  Serious: Yes (Other)
  Sender: FDA-Public Use
  Company Number: US-PFIZER INC-2007064228

PATIENT

DRUGS (1)
  1. IDAMYCIN POWDER, STERILE [Suspect]
     Indication: LEUKAEMIA

REACTIONS (4)
  - DISEASE PROGRESSION [None]
  - LEUKAEMIA [None]
  - LYMPHOMA [None]
  - NEOPLASM MALIGNANT [None]
